FAERS Safety Report 13707697 (Version 1)
Quarter: 2017Q2

REPORT INFORMATION
  Report Type: Spontaneous
  Country: FR (occurrence: FR)
  Receive Date: 20170630
  Receipt Date: 20170630
  Transmission Date: 20170830
  Serious: Yes (Death, Other)
  Sender: FDA-Public Use
  Company Number: FR-AMGEN-FRASP2017097459

PATIENT
  Age: 60 Year
  Sex: Male

DRUGS (34)
  1. DESFERAL [Concomitant]
     Active Substance: DEFEROXAMINE MESYLATE
     Dosage: 600 MG, QD
     Route: 058
     Dates: start: 20140222, end: 20140504
  2. MODOPAR [Concomitant]
     Active Substance: BENSERAZIDE HYDROCHLORIDE\LEVODOPA
     Dosage: UNK
     Dates: start: 2014
  3. ROVALCYTE [Concomitant]
     Active Substance: VALGANCICLOVIR HYDROCHLORIDE
     Dosage: UNK
     Dates: end: 20140326
  4. ZOVIRAX [Concomitant]
     Active Substance: ACYCLOVIR
     Dosage: UNK
     Dates: start: 20140603
  5. BACTRIM [Concomitant]
     Active Substance: SULFAMETHOXAZOLE\TRIMETHOPRIM
     Dosage: 1 DOSAGE FORM Q3WK
     Route: 048
     Dates: start: 20131115, end: 20140602
  6. CRESTOR [Concomitant]
     Active Substance: ROSUVASTATIN CALCIUM
  7. XATRAL [Concomitant]
     Active Substance: ALFUZOSIN
  8. LOXEN [Concomitant]
     Active Substance: NICARDIPINE HYDROCHLORIDE
  9. ORACILLIN [Concomitant]
     Active Substance: PENICILLIN V BENZATHINE
     Dosage: 100000 IU, QD
     Route: 048
     Dates: start: 20131113, end: 20140404
  10. ACICLOVIR [Concomitant]
     Active Substance: ACYCLOVIR
  11. LEXOMIL [Concomitant]
     Active Substance: BROMAZEPAM
     Indication: ANTIDEPRESSANT THERAPY
     Dosage: UNK
  12. ARANESP [Suspect]
     Active Substance: DARBEPOETIN ALFA
     Indication: PRODUCT USED FOR UNKNOWN INDICATION
     Dosage: 150 MUG, QD
     Route: 058
     Dates: start: 20140221, end: 20140512
  13. ZELITREX [Suspect]
     Active Substance: VALACYCLOVIR HYDROCHLORIDE
     Indication: PRODUCT USED FOR UNKNOWN INDICATION
     Dosage: 500 MG, UNK
     Route: 048
     Dates: start: 201312, end: 20140327
  14. TAZOCILLINE [Concomitant]
     Active Substance: PIPERACILLIN SODIUM\TAZOBACTAM SODIUM
     Dosage: UNK
     Dates: end: 20140401
  15. ZYVOXID [Concomitant]
     Active Substance: LINEZOLID
  16. TRIFLUCAN [Concomitant]
     Active Substance: FLUCONAZOLE
  17. DEROXAT [Concomitant]
     Active Substance: PAROXETINE HYDROCHLORIDE
     Indication: ANTIDEPRESSANT THERAPY
     Dosage: UNK
     Dates: start: 20140603
  18. SPIRIVA [Concomitant]
     Active Substance: TIOTROPIUM BROMIDE MONOHYDRATE
  19. LANTUS [Concomitant]
     Active Substance: INSULIN GLARGINE
     Dosage: 22 IU, QD
     Route: 058
     Dates: start: 20131226, end: 201404
  20. ATARAX [Concomitant]
     Active Substance: HYDROXYZINE HYDROCHLORIDE
     Dosage: UNK
     Dates: end: 20140603
  21. TAREG [Concomitant]
     Active Substance: VALSARTAN
  22. DELURSAN [Concomitant]
     Active Substance: URSODIOL
  23. DECTANCYL [Concomitant]
     Active Substance: DEXAMETHASONE
     Dosage: 1 MG, QD
     Route: 048
     Dates: start: 20140309, end: 20140310
  24. EPREX [Concomitant]
     Active Substance: ERYTHROPOIETIN
  25. FORTUM [Concomitant]
     Active Substance: CEFTAZIDIME
  26. ZOLPIDEM [Concomitant]
     Active Substance: ZOLPIDEM\ZOLPIDEM TARTRATE
     Dosage: 10 MG, QD
     Route: 048
     Dates: start: 201311, end: 20140504
  27. OMEPRAZOL [Concomitant]
     Active Substance: OMEPRAZOLE
     Dosage: UNK
     Dates: start: 20140603
  28. INNOVAIR [Concomitant]
     Active Substance: BECLOMETHASONE DIPROPIONATE\FORMOTEROL
  29. NEORAL [Concomitant]
     Active Substance: CYCLOSPORINE
     Dosage: 160 MG, QD
     Route: 048
     Dates: start: 20131022, end: 20140602
  30. CELLCEPT [Concomitant]
     Active Substance: MYCOPHENOLATE MOFETIL\MYCOPHENOLATE MOFETIL HYDROCHLORIDE
     Dosage: UNK
  31. PAROXETINE ARROW [Concomitant]
     Active Substance: PAROXETINE
     Dosage: 20 MG, QD
     Route: 048
     Dates: start: 20131113, end: 20140504
  32. CORTANCYL [Concomitant]
     Active Substance: PREDNISONE
     Dosage: 5 MG, QD
     Route: 048
     Dates: start: 201301, end: 201404
  33. IMOVANE [Concomitant]
     Active Substance: ZOPICLONE
     Indication: ANTIDEPRESSANT THERAPY
  34. FINASTERIDE ARROW [Concomitant]
     Dosage: 5 MG, QD
     Route: 048
     Dates: start: 20140219, end: 20140504

REACTIONS (1)
  - Encephalopathy [Fatal]

NARRATIVE: CASE EVENT DATE: 20140310
